FAERS Safety Report 5817690-9 (Version None)
Quarter: 2008Q3

REPORT INFORMATION
  Report Type: 
  Country: None (occurrence: None)
  Receive Date: 20080722
  Receipt Date: 20080708
  Transmission Date: 20090109
  Serious: Yes (Other)
  Sender: FDA-Public Use
  Company Number: PHEH2008US06079

PATIENT
  Sex: Female

DRUGS (1)
  1. FOCALIN XR [Suspect]
     Dosage: UNK
     Dates: end: 20080704

REACTIONS (5)
  - ABDOMINAL PAIN UPPER [None]
  - BODY TEMPERATURE DECREASED [None]
  - DRUG WITHDRAWAL SYNDROME [None]
  - HEADACHE [None]
  - LETHARGY [None]
